FAERS Safety Report 12511628 (Version 1)
Quarter: 2020Q3

REPORT INFORMATION
  Report Type: Spontaneous
  Country: US (occurrence: US)
  Receive Date: 20160630
  Receipt Date: 20160630
  Transmission Date: 20201104
  Serious: Yes (Life-Threatening, Hospitalization)
  Sender: FDA-Public Use
  Company Number: US-ROCHE-1778455

PATIENT
  Age: 71 Year
  Sex: Female
  Weight: 80.8 kg

DRUGS (14)
  1. SYNTHROID [Concomitant]
     Active Substance: LEVOTHYROXINE SODIUM
     Route: 048
  2. KEPPRA [Concomitant]
     Active Substance: LEVETIRACETAM
     Route: 048
  3. COLACE [Concomitant]
     Active Substance: DOCUSATE SODIUM
     Route: 048
  4. CRIZOTINIB [Concomitant]
     Active Substance: CRIZOTINIB
  5. AMLODIPINE [Concomitant]
     Active Substance: AMLODIPINE BESYLATE
     Route: 048
  6. ZOFRAN [Concomitant]
     Active Substance: ONDANSETRON HYDROCHLORIDE
     Route: 048
     Dates: start: 20160614
  7. TARCEVA [Suspect]
     Active Substance: ERLOTINIB HYDROCHLORIDE
     Indication: LUNG CANCER METASTATIC
     Route: 065
  8. ALECTINIB. [Suspect]
     Active Substance: ALECTINIB
     Indication: PRODUCT USED FOR UNKNOWN INDICATION
     Route: 048
     Dates: start: 20160323, end: 20160510
  9. VITAMIN D3 [Concomitant]
     Active Substance: CHOLECALCIFEROL
     Dosage: DOSE: 2000 UNIT
     Route: 048
  10. DEXAMETHASONE. [Concomitant]
     Active Substance: DEXAMETHASONE
     Route: 048
     Dates: start: 20160601
  11. METOPROLOL SUCCINATE. [Concomitant]
     Active Substance: METOPROLOL SUCCINATE
     Route: 048
  12. KEPPRA [Concomitant]
     Active Substance: LEVETIRACETAM
     Dosage: DOSE INCREASED
     Route: 048
     Dates: start: 20160210
  13. LASIX [Concomitant]
     Active Substance: FUROSEMIDE
     Route: 048
  14. FOLIC ACID. [Concomitant]
     Active Substance: FOLIC ACID
     Route: 048
     Dates: start: 20160601

REACTIONS (2)
  - Pneumonitis [Recovering/Resolving]
  - Pulmonary toxicity [Recovered/Resolved]

NARRATIVE: CASE EVENT DATE: 20160412
